FAERS Safety Report 5380907-1 (Version None)
Quarter: 2007Q3

REPORT INFORMATION
  Report Type: 
  Country: None (occurrence: None)
  Receive Date: 20070702
  Receipt Date: 20060818
  Transmission Date: 20080115
  Serious: Yes (Other)
  Sender: FDA-Public Use
  Company Number: SPV1-2006-00468

PATIENT
  Age: 25 Year
  Sex: Male

DRUGS (5)
  1. PENTASA [Suspect]
     Indication: COLITIS ULCERATIVE
     Dosage: 750 MG 3XS DAILY, ORAL
     Route: 048
     Dates: start: 20060404, end: 20060729
  2. LOPERMIDE       (LOPERAMIDE HYDROCHLORIDE) [Concomitant]
  3. ACETAMINOPHEN [Concomitant]
  4. PREDNISOLONE [Concomitant]
  5. FOSFOMYCIN                          /00552502/ (FOSFOMYCIN CALCIUM) [Concomitant]

REACTIONS (1)
  - LIVER DISORDER [None]
